FAERS Safety Report 10240021 (Version 1)
Quarter: 2014Q2

REPORT INFORMATION
  Report Type: Spontaneous
  Country: CN (occurrence: CN)
  Receive Date: 20140616
  Receipt Date: 20140616
  Transmission Date: 20141212
  Serious: Yes (Other)
  Sender: FDA-Public Use
  Company Number: CN-JNJFOC-20140605740

PATIENT
  Age: 51 Year
  Sex: Male

DRUGS (1)
  1. DAKTAGOLD [Suspect]
     Indication: PRURITUS
     Dosage: 2-3 TIMES DAILY
     Route: 061

REACTIONS (4)
  - Product counterfeit [Unknown]
  - Intentional product misuse [Unknown]
  - Drug ineffective [Unknown]
  - Pruritus [Not Recovered/Not Resolved]
